FAERS Safety Report 16963571 (Version 1)
Quarter: 2019Q4

REPORT INFORMATION
  Report Type: Spontaneous
  Country: IT (occurrence: IT)
  Receive Date: 20191025
  Receipt Date: 20191025
  Transmission Date: 20200122
  Serious: Yes (Other)
  Sender: FDA-Public Use
  Company Number: IT-SAMSUNG BIOEPIS-SB-2019-30949

PATIENT
  Age: 51 Year
  Sex: Female

DRUGS (1)
  1. FLIXABI [Suspect]
     Active Substance: INFLIXIMAB
     Indication: CROHN^S DISEASE
     Route: 065
     Dates: start: 20130318, end: 20190314

REACTIONS (2)
  - Hidradenitis [Not Recovered/Not Resolved]
  - Paradoxical drug reaction [Not Recovered/Not Resolved]

NARRATIVE: CASE EVENT DATE: 20180905
